FAERS Safety Report 21549566 (Version 1)
Quarter: 2022Q4

REPORT INFORMATION
  Report Type: Spontaneous
  Country: CN (occurrence: CN)
  Receive Date: 20221103
  Receipt Date: 20221103
  Transmission Date: 20230112
  Serious: Yes (Hospitalization)
  Sender: FDA-Public Use
  Company Number: CN-ORGANON-O2210CHN002325

PATIENT
  Age: 48 Year
  Sex: Female
  Weight: 46 kg

DRUGS (1)
  1. DIPROSPAN [Suspect]
     Active Substance: BETAMETHASONE DIPROPIONATE\BETAMETHASONE SODIUM PHOSPHATE
     Indication: Keloid scar
     Dosage: ONE VIAL, QD
     Dates: start: 20221008, end: 20221008

REACTIONS (4)
  - Induration [Recovering/Resolving]
  - Pain [Recovering/Resolving]
  - Body temperature decreased [Recovering/Resolving]
  - Insomnia [Recovering/Resolving]

NARRATIVE: CASE EVENT DATE: 20221001
